FAERS Safety Report 4421779-9 (Version None)
Quarter: 2004Q3

REPORT INFORMATION
  Report Type: 
  Country: None (occurrence: None)
  Receive Date: 20040806
  Receipt Date: 20040719
  Transmission Date: 20050211
  Serious: Yes (Hospitalization)
  Sender: FDA-Public Use
  Company Number: USA040669748

PATIENT
  Age: 70 Year
  Sex: Male
  Weight: 97 kg

DRUGS (3)
  1. GEMZAR-IV  (GEMCITABINE HYDROCHLORIDE) [Suspect]
     Indication: LUNG NEOPLASM MALIGNANT
     Dosage: 1760 MG
     Route: 042
     Dates: start: 20040604
  2. OMNICEF [Concomitant]
  3. CARBOPLATIN [Concomitant]

REACTIONS (7)
  - COMPUTERISED TOMOGRAM ABNORMAL [None]
  - DIZZINESS [None]
  - DRUG INEFFECTIVE [None]
  - OROPHARYNGEAL SWELLING [None]
  - PRODUCTIVE COUGH [None]
  - SUPERIOR VENA CAVAL OCCLUSION [None]
  - THROAT TIGHTNESS [None]
